FAERS Safety Report 22029395 (Version 1)
Quarter: 2023Q1

REPORT INFORMATION
  Report Type: Spontaneous
  Country: US (occurrence: US)
  Receive Date: 20230223
  Receipt Date: 20230223
  Transmission Date: 20230418
  Serious: No
  Sender: FDA-Public Use
  Company Number: US-BRISTOL-MYERS SQUIBB COMPANY-2023-026031

PATIENT
  Age: 72 Year
  Sex: Female

DRUGS (2)
  1. CAMZYOS [Interacting]
     Active Substance: MAVACAMTEN
     Indication: Product used for unknown indication
     Route: 048
  2. VERAPAMIL [Interacting]
     Active Substance: VERAPAMIL HYDROCHLORIDE
     Indication: Blood pressure measurement

REACTIONS (3)
  - Blood pressure increased [Unknown]
  - Labelled drug-drug interaction issue [Unknown]
  - Intentional product use issue [Unknown]
